FAERS Safety Report 8808473 (Version 5)
Quarter: 2015Q4

REPORT INFORMATION
  Report Type: Spontaneous
  Country: US (occurrence: US)
  Receive Date: 20120926
  Receipt Date: 20151208
  Transmission Date: 20160305
  Serious: Yes (Hospitalization, Other)
  Sender: FDA-Public Use
  Company Number: US-BAYER-2012-098336

PATIENT
  Age: 37 Year
  Sex: Female
  Weight: 104.31 kg

DRUGS (4)
  1. TIGAN [Concomitant]
     Active Substance: TRIMETHOBENZAMIDE HYDROCHLORIDE
  2. MIRALAX [Concomitant]
     Active Substance: POLYETHYLENE GLYCOL 3350
  3. YAZ [Suspect]
     Active Substance: DROSPIRENONE\ETHINYL ESTRADIOL
     Dosage: UNK
     Dates: start: 200609, end: 20100804
  4. AUGMENTIN [Concomitant]
     Active Substance: AMOXICILLIN\CLAVULANATE POTASSIUM

REACTIONS (7)
  - Mesenteric vein thrombosis [None]
  - Embolism arterial [None]
  - Deep vein thrombosis [None]
  - Thrombophlebitis superficial [None]
  - General physical health deterioration [None]
  - Injury [None]
  - Pain [None]

NARRATIVE: CASE EVENT DATE: 2010
